FAERS Safety Report 21747867 (Version 1)
Quarter: 2022Q4

REPORT INFORMATION
  Report Type: Spontaneous
  Country: US (occurrence: None)
  Receive Date: 20221216
  Receipt Date: 20221216
  Transmission Date: 20230113
  Serious: Yes (Other)
  Sender: FDA-Public Use
  Company Number: None

PATIENT
  Age: 69 Year
  Sex: Female
  Weight: 63.45 kg

DRUGS (21)
  1. PACLITAXEL [Suspect]
     Active Substance: PACLITAXEL
     Indication: Fallopian tube cancer
     Dosage: OTHER FREQUENCY : ONCE A WEEK;?
     Route: 042
     Dates: start: 20221118, end: 20221214
  2. LAPATINIB [Suspect]
     Active Substance: LAPATINIB
     Indication: Fallopian tube cancer
     Dosage: OTHER FREQUENCY : 5DAYS OFF/2DAYS ON;?
     Route: 048
     Dates: start: 20221118, end: 20221214
  3. APRESOLINE HYDROCHLORIDE [Concomitant]
     Active Substance: HYDRALAZINE HYDROCHLORIDE
     Dates: start: 20221118
  4. COMPAZINE [Concomitant]
     Active Substance: PROCHLORPERAZINE MALEATE
     Dates: start: 20221118
  5. PEPCID [Concomitant]
     Active Substance: FAMOTIDINE
     Dates: start: 20221118, end: 20221118
  6. ZYRTEC [Concomitant]
     Active Substance: CETIRIZINE HYDROCHLORIDE
     Dates: start: 20221118, end: 20221118
  7. DECADRON [Concomitant]
     Active Substance: DEXAMETHASONE
     Dates: start: 20221118, end: 20221118
  8. ATIVAN [Concomitant]
     Active Substance: LORAZEPAM
     Dates: start: 20221118, end: 20221119
  9. DECADRON [Concomitant]
     Active Substance: DEXAMETHASONE
     Dates: start: 20221123, end: 20221123
  10. ATIVAN [Concomitant]
     Active Substance: LORAZEPAM
     Dates: start: 20221123
  11. COMPAZINE [Concomitant]
     Active Substance: PROCHLORPERAZINE MALEATE
     Dates: start: 20221123, end: 20221123
  12. PEPCID [Concomitant]
     Active Substance: FAMOTIDINE
     Dates: start: 20221123, end: 20221123
  13. ZYRTEC [Concomitant]
     Active Substance: CETIRIZINE HYDROCHLORIDE
     Dates: start: 20221123, end: 20221123
  14. KLOR-CON [Concomitant]
     Active Substance: POTASSIUM CHLORIDE
     Dates: start: 20221123, end: 20221123
  15. ATIVAN [Concomitant]
     Active Substance: LORAZEPAM
     Dates: start: 20221130, end: 20221201
  16. PEPCID [Concomitant]
     Active Substance: FAMOTIDINE
     Dates: start: 20221130, end: 20221130
  17. ZYRTEC [Concomitant]
     Active Substance: CETIRIZINE HYDROCHLORIDE
     Dates: start: 20221130, end: 20221130
  18. DECADRON [Concomitant]
     Active Substance: DEXAMETHASONE
     Dates: start: 20221130, end: 20221130
  19. COZAAR [Concomitant]
     Active Substance: LOSARTAN POTASSIUM
     Dates: start: 20221202
  20. DIETARY SUPPLEMENT [Concomitant]
     Active Substance: DIETARY SUPPLEMENT
     Dates: start: 20221214
  21. KLOR-CON [Concomitant]
     Active Substance: POTASSIUM CHLORIDE
     Dates: start: 20221214, end: 20221214

REACTIONS (4)
  - Alanine aminotransferase increased [None]
  - Aspartate aminotransferase increased [None]
  - Anaemia [None]
  - Therapy interrupted [None]

NARRATIVE: CASE EVENT DATE: 20221214
